FAERS Safety Report 9206664 (Version 1)
Quarter: 2013Q1

REPORT INFORMATION
  Report Type: Spontaneous
  Country: US (occurrence: None)
  Receive Date: 20120731
  Receipt Date: 20120731
  Transmission Date: 20140127
  Serious: No
  Sender: FDA-Public Use
  Company Number: 2012MZ000337

PATIENT
  Age: 49 Year
  Sex: Female

DRUGS (4)
  1. XEOMIN [Suspect]
     Indication: PRODUCT USED FOR UNKNOWN INDICATION
     Dosage: 24 U
     Dates: start: 20120215, end: 20120215
  2. LEXAPRO [Concomitant]
  3. ADAPALENE [Concomitant]
  4. PREMARIN [Concomitant]

REACTIONS (1)
  - Drug ineffective [None]
